FAERS Safety Report 5870522-5 (Version None)
Quarter: 2008Q3

REPORT INFORMATION
  Report Type: 
  Country: None (occurrence: None)
  Receive Date: 20080904
  Receipt Date: 20080827
  Transmission Date: 20090109
  Serious: Yes (Other)
  Sender: FDA-Public Use
  Company Number: US-MERCK-0808USA05269

PATIENT
  Age: 43 Year
  Sex: Female

DRUGS (4)
  1. HYDRODIURIL [Suspect]
     Route: 048
  2. PRINIVIL [Suspect]
     Route: 048
  3. AVALIDE [Suspect]
     Route: 048
  4. AVALIDE [Suspect]
     Route: 048

REACTIONS (1)
  - ANAPHYLACTIC REACTION [None]
